FAERS Safety Report 7618823-4 (Version None)
Quarter: 2011Q3

REPORT INFORMATION
  Report Type: 
  Country: None (occurrence: None)
  Receive Date: 20110718
  Receipt Date: 20110712
  Transmission Date: 20111222
  Serious: Yes (Death, Other)
  Sender: FDA-Public Use
  Company Number: US-PFIZER INC-2011095016

PATIENT
  Sex: Male

DRUGS (9)
  1. FAMOTIDINE [Concomitant]
     Dosage: 20 MG, UNK
     Route: 048
  2. VFEND [Suspect]
     Dosage: 50 MG, 2X/DAY
  3. ALBUTEROL [Concomitant]
     Dosage: 2.5 MG/3ML
  4. CEPHALEXIN [Concomitant]
     Dosage: 500 MG, 3X/DAY
     Route: 048
  5. ERYTHROMYCIN [Concomitant]
     Dosage: 250 MG (1/2 TABLET) 3X/DAY
     Route: 048
  6. OXANDROLONE [Concomitant]
     Dosage: 2.5 MG, 1X/DAY
     Route: 048
  7. FLOMAX [Concomitant]
     Dosage: 0.4 MG, UNK
     Route: 048
  8. VFEND [Suspect]
     Indication: LUNG DISORDER
     Dosage: 200 MG, 2X/DAY
     Dates: start: 20090722
  9. PREDNISONE [Concomitant]
     Dosage: 10 MG, UNK
     Route: 048

REACTIONS (2)
  - ASPERGILLOMA [None]
  - ASPERGILLUS TEST POSITIVE [None]
